FAERS Safety Report 14317417 (Version 1)
Quarter: 2017Q4

REPORT INFORMATION
  Report Type: Spontaneous
  Country: US (occurrence: US)
  Receive Date: 20171222
  Receipt Date: 20171222
  Transmission Date: 20180321
  Serious: No
  Sender: FDA-Public Use
  Company Number: US-PFIZER INC-2017541706

PATIENT
  Sex: Male

DRUGS (1)
  1. EUCRISA [Suspect]
     Active Substance: CRISABOROLE
     Indication: ECZEMA
     Dosage: UNK
     Dates: start: 201712

REACTIONS (1)
  - Treatment noncompliance [Unknown]

NARRATIVE: CASE EVENT DATE: 201712
